FAERS Safety Report 9225939 (Version 1)
Quarter: 2013Q2

REPORT INFORMATION
  Report Type: Spontaneous
  Country: US (occurrence: US)
  Receive Date: 20130411
  Receipt Date: 20130411
  Transmission Date: 20140414
  Serious: No
  Sender: FDA-Public Use
  Company Number: US-ASTELLAS-2013US003341

PATIENT
  Age: 65 Year
  Sex: Female

DRUGS (2)
  1. PROTOPIC [Suspect]
     Indication: PSORIATIC ARTHROPATHY
     Dosage: 3 TO 4 TIMES PER WEEK
     Route: 061
  2. ENBREL [Concomitant]
     Indication: PRODUCT USED FOR UNKNOWN INDICATION
     Dosage: UNK
     Route: 065

REACTIONS (1)
  - Nasopharyngitis [Unknown]
